FAERS Safety Report 26125887 (Version 1)
Quarter: 2025Q4

REPORT INFORMATION
  Report Type: Report from Study
  Country: EU (occurrence: EU)
  Receive Date: 20251205
  Receipt Date: 20251205
  Transmission Date: 20260118
  Serious: Yes (Disabling)
  Sender: TEVA
  Company Number: EU-TEVA-VS-3397681

PATIENT
  Age: 68 Year
  Sex: Female

DRUGS (3)
  1. TERIPARATIDE [Suspect]
     Active Substance: TERIPARATIDE
     Indication: Osteoporosis
     Dosage: FORM STRENGTH: 20 MCG/ 80MCL
     Route: 065
     Dates: start: 20240607
  2. LEVOTHYROXINE SODIUM [Concomitant]
     Active Substance: LEVOTHYROXINE SODIUM
     Indication: Hypothyroidism
     Dosage: 100 :DOSE: ONE IN THE MORNING FROM MONDAY TO THURSDAY; START DATE: SOME TIME AGO; END DATE: CONTI...
     Route: 065
  3. LEVOTHYROXINE SODIUM [Concomitant]
     Active Substance: LEVOTHYROXINE SODIUM
     Indication: Hypothyroidism
     Dosage: TIME INTERVAL: 0.33333333 WEEKS: 88 :DOSE: ONE IN THE MORNING FROM FRIDAY TO SUNDAY; START DATE: ...
     Route: 065

REACTIONS (2)
  - Pain in extremity [Not Recovered/Not Resolved]
  - Activities of daily living decreased [Not Recovered/Not Resolved]

NARRATIVE: CASE EVENT DATE: 20250101
